FAERS Safety Report 20810868 (Version 2)
Quarter: 2022Q3

REPORT INFORMATION
  Report Type: Report from Study
  Country: US (occurrence: US)
  Receive Date: 20220510
  Receipt Date: 20220708
  Transmission Date: 20221027
  Serious: No
  Sender: FDA-Public Use
  Company Number: US-OTSUKA-2022_026224

PATIENT
  Sex: Male

DRUGS (1)
  1. BREXPIPRAZOLE [Suspect]
     Active Substance: BREXPIPRAZOLE
     Indication: Depression
     Dosage: 2 MG, QD
     Route: 065
     Dates: start: 202005

REACTIONS (1)
  - Product use in unapproved indication [Unknown]
